FAERS Safety Report 6345268-X (Version None)
Quarter: 2009Q3

REPORT INFORMATION
  Report Type: 
  Country: None (occurrence: None)
  Receive Date: 20090909
  Receipt Date: 20090904
  Transmission Date: 20100115
  Serious: Yes (Death, Other)
  Sender: FDA-Public Use
  Company Number: PHHY2009JP36385

PATIENT
  Age: 57 Year
  Sex: Female

DRUGS (3)
  1. CYCLOSPORINE [Suspect]
     Indication: CORD BLOOD TRANSPLANT THERAPY
     Dosage: UNK
  2. METHOTREXATE [Suspect]
     Indication: CORD BLOOD TRANSPLANT THERAPY
  3. TACROLIMUS [Concomitant]
     Indication: CORD BLOOD TRANSPLANT THERAPY

REACTIONS (10)
  - CARDIAC FAILURE [None]
  - CHEST PAIN [None]
  - CHLOROMA [None]
  - DISORIENTATION [None]
  - LEUKAEMIC INFILTRATION EXTRAMEDULLARY [None]
  - MELAENA [None]
  - PERICARDIAL EFFUSION [None]
  - PLEURAL EFFUSION [None]
  - RESPIRATORY DISTRESS [None]
  - THROMBOTIC MICROANGIOPATHY [None]
